FAERS Safety Report 9378499 (Version 52)
Quarter: 2016Q1

REPORT INFORMATION
  Report Type: Spontaneous
  Country: CA (occurrence: CA)
  Receive Date: 20130702
  Receipt Date: 20160314
  Transmission Date: 20160526
  Serious: Yes (Hospitalization, Other)
  Sender: FDA-Public Use
  Company Number: CA-ROCHE-1241492

PATIENT
  Age: 50 Year
  Sex: Female

DRUGS (19)
  1. XOLAIR [Suspect]
     Active Substance: OMALIZUMAB
     Indication: ASTHMA
     Route: 058
     Dates: start: 20121025
  2. SALBUTAMOL [Concomitant]
     Active Substance: ALBUTEROL
  3. ATROVENT [Concomitant]
     Active Substance: IPRATROPIUM BROMIDE
     Indication: ASTHMA
     Route: 065
  4. SINGULAIR [Concomitant]
     Active Substance: MONTELUKAST SODIUM
  5. XOLAIR [Suspect]
     Active Substance: OMALIZUMAB
     Route: 058
     Dates: start: 20130927
  6. XOLAIR [Suspect]
     Active Substance: OMALIZUMAB
     Route: 058
     Dates: start: 20151224
  7. XOLAIR [Suspect]
     Active Substance: OMALIZUMAB
     Route: 058
     Dates: start: 20140502
  8. XOLAIR [Suspect]
     Active Substance: OMALIZUMAB
     Route: 058
     Dates: start: 20160205
  9. SPIRIVA [Concomitant]
     Active Substance: TIOTROPIUM BROMIDE MONOHYDRATE
  10. XOLAIR [Suspect]
     Active Substance: OMALIZUMAB
     Route: 058
     Dates: start: 20140124
  11. XOLAIR [Suspect]
     Active Substance: OMALIZUMAB
     Route: 058
     Dates: start: 20150710
  12. XOLAIR [Suspect]
     Active Substance: OMALIZUMAB
     Route: 058
     Dates: start: 20150807
  13. XOLAIR [Suspect]
     Active Substance: OMALIZUMAB
     Route: 058
     Dates: start: 20131101
  14. XOLAIR [Suspect]
     Active Substance: OMALIZUMAB
     Route: 058
     Dates: start: 20150422
  15. ADVAIR HFA [Concomitant]
     Active Substance: FLUTICASONE PROPIONATE\SALMETEROL XINAFOATE
     Route: 065
  16. XOLAIR [Suspect]
     Active Substance: OMALIZUMAB
     Route: 058
     Dates: start: 20150224
  17. XOLAIR [Suspect]
     Active Substance: OMALIZUMAB
     Route: 058
     Dates: start: 20150325
  18. XOLAIR [Suspect]
     Active Substance: OMALIZUMAB
     Route: 058
     Dates: start: 20151120
  19. VENTOLIN [Concomitant]
     Active Substance: ALBUTEROL SULFATE
     Indication: ASTHMA
     Route: 065
     Dates: start: 20160129

REACTIONS (31)
  - Diabetes mellitus inadequate control [Unknown]
  - Osteoporosis [Unknown]
  - Staphylococcal infection [Recovering/Resolving]
  - Rhinitis [Recovering/Resolving]
  - Weight increased [Unknown]
  - Stress [Unknown]
  - Dysmenorrhoea [Unknown]
  - Asthma [Recovering/Resolving]
  - Dizziness [Recovered/Resolved]
  - Spinal fracture [Unknown]
  - Blood pressure increased [Unknown]
  - Injection site pruritus [Recovering/Resolving]
  - Sleep apnoea syndrome [Unknown]
  - Influenza like illness [Unknown]
  - Nasopharyngitis [Unknown]
  - Back pain [Unknown]
  - Respiratory disorder [Unknown]
  - Heart rate increased [Unknown]
  - Dizziness postural [Unknown]
  - Abdominal pain upper [Unknown]
  - Chills [Unknown]
  - Palpitations [Unknown]
  - Musculoskeletal chest pain [Unknown]
  - Rhonchi [Unknown]
  - Tachypnoea [Unknown]
  - Chest pain [Recovered/Resolved]
  - Malaise [Unknown]
  - Stress fracture [Unknown]
  - Pruritus [Recovering/Resolving]
  - Body temperature decreased [Unknown]
  - Gastrooesophageal reflux disease [Unknown]

NARRATIVE: CASE EVENT DATE: 20121122
